FAERS Safety Report 22142256 (Version 2)
Quarter: 2023Q2

REPORT INFORMATION
  Report Type: Spontaneous
  Country: CA (occurrence: CA)
  Receive Date: 20230327
  Receipt Date: 20230410
  Transmission Date: 20230721
  Serious: Yes (Death)
  Sender: FDA-Public Use
  Company Number: CA-PFIZER INC-PV202200074475

PATIENT
  Age: 88 Year
  Sex: Female

DRUGS (2)
  1. MEKTOVI [Suspect]
     Active Substance: BINIMETINIB
     Indication: Malignant melanoma
     Dosage: 30 MG, EVERY 12 HOURS FOR 28 DAYS
     Route: 048
     Dates: start: 20220914
  2. BRAFTOVI [Suspect]
     Active Substance: ENCORAFENIB
     Indication: Malignant melanoma
     Dosage: 300 MG, DAILY FOR 28 DAYS
     Route: 048
     Dates: start: 20220914

REACTIONS (2)
  - Death [Fatal]
  - Off label use [Unknown]
